FAERS Safety Report 8180039-3 (Version None)
Quarter: 2012Q1

REPORT INFORMATION
  Report Type: 
  Country: None (occurrence: None)
  Receive Date: 20120302
  Receipt Date: 20120224
  Transmission Date: 20120608
  Serious: Yes (Other)
  Sender: FDA-Public Use
  Company Number: IE-US-EMD SERONO, INC.-7114280

PATIENT
  Sex: Female

DRUGS (4)
  1. REBIF [Suspect]
     Indication: RELAPSING-REMITTING MULTIPLE SCLEROSIS
     Route: 058
     Dates: start: 20110718, end: 20120206
  2. EPILIN (EPILIM) [Concomitant]
     Indication: EPILEPSY
  3. DIABETES TABLETS [Concomitant]
     Indication: DIABETES MELLITUS
     Dates: end: 20120206
  4. CARDIAC MEDICATION [Concomitant]
     Indication: CARDIAC DISORDER
     Dates: end: 20120206

REACTIONS (6)
  - LOWER RESPIRATORY TRACT INFECTION [None]
  - COUGH [None]
  - CHILLS [None]
  - FEELING COLD [None]
  - HEADACHE [None]
  - TREATMENT NONCOMPLIANCE [None]
